FAERS Safety Report 10370332 (Version 3)
Quarter: 2015Q2

REPORT INFORMATION
  Report Type: Spontaneous
  Country: US (occurrence: US)
  Receive Date: 20140808
  Receipt Date: 20150420
  Transmission Date: 20150821
  Serious: Yes (Hospitalization, Congenital Anomaly, Other)
  Sender: FDA-Public Use
  Company Number: US-ELI_LILLY_AND_COMPANY-US201407011967

PATIENT

DRUGS (2)
  1. SAROTEN [Concomitant]
     Active Substance: AMITRIPTYLINE
     Indication: DEPRESSION
     Dosage: 20 MG, QD
     Route: 064
  2. SARAFEM [Suspect]
     Active Substance: FLUOXETINE HYDROCHLORIDE
     Indication: PRODUCT USED FOR UNKNOWN INDICATION
     Route: 065

REACTIONS (8)
  - Ventricular septal defect [Unknown]
  - Sinus arrhythmia [Unknown]
  - Dilatation ventricular [Unknown]
  - Respiratory distress [Unknown]
  - Atrial septal defect [Unknown]
  - Transient tachypnoea of the newborn [Unknown]
  - Foetal exposure during pregnancy [Recovered/Resolved]
  - Cardiac failure congestive [Unknown]
